FAERS Safety Report 6148764-3 (Version None)
Quarter: 2009Q2

REPORT INFORMATION
  Report Type: 
  Country: None (occurrence: None)
  Receive Date: 20090406
  Receipt Date: 20090323
  Transmission Date: 20091009
  Serious: Yes (Death)
  Sender: FDA-Public Use
  Company Number: ADE2009-0518

PATIENT
  Age: 25 Year
  Sex: Female

DRUGS (9)
  1. CITALOPRAM HYDROBROMIDE [Suspect]
  2. OLANZAPINE [Suspect]
  3. DEXTROMETHORPHAN HYDROBROMIDE [Suspect]
  4. TEMAZEPAM [Suspect]
  5. ZOLPIDEM TARTRATE [Suspect]
  6. NAPROXEN [Concomitant]
  7. RISPERIDONE [Concomitant]
  8. LITHIUM CARBONATE [Concomitant]
  9. METHOCARBAMOL [Concomitant]

REACTIONS (2)
  - ALCOHOL POISONING [None]
  - DRUG TOXICITY [None]
